FAERS Safety Report 4486336-7 (Version None)
Quarter: 2004Q4

REPORT INFORMATION
  Report Type: 
  Country: None (occurrence: None)
  Receive Date: 20041027
  Receipt Date: 20041015
  Transmission Date: 20050328
  Serious: Yes (Other)
  Sender: FDA-Public Use
  Company Number: US-JNJFOC-20040907145

PATIENT
  Sex: Female
  Weight: 64.86 kg

DRUGS (7)
  1. REMICADE [Suspect]
     Indication: CROHN'S DISEASE
     Route: 042
  2. REMICADE [Suspect]
     Indication: RHEUMATOID ARTHRITIS
     Route: 042
  3. OXYCONTIN [Concomitant]
  4. PHENERGEN [Concomitant]
  5. BACLOFEN [Concomitant]
  6. BELLADONA [Concomitant]
  7. LEXAPRO [Concomitant]

REACTIONS (11)
  - ABDOMINAL PAIN UPPER [None]
  - BONE NEOPLASM MALIGNANT [None]
  - CONJUNCTIVITIS [None]
  - HYPOAESTHESIA [None]
  - INCREASED UPPER AIRWAY SECRETION [None]
  - LUNG DISORDER [None]
  - LYMPHOMA [None]
  - MYCOSIS FUNGOIDES [None]
  - NASAL ULCER [None]
  - SKIN LESION [None]
  - TOE AMPUTATION [None]
